FAERS Safety Report 7918304-4 (Version None)
Quarter: 2011Q4

REPORT INFORMATION
  Report Type: 
  Country: None (occurrence: None)
  Receive Date: 20111116
  Receipt Date: 20111015
  Transmission Date: 20120403
  Serious: Yes (Other)
  Sender: FDA-Public Use
  Company Number: DE-GLAXOSMITHKLINE-D0073049A

PATIENT
  Sex: Female

DRUGS (2)
  1. OXCARBAZEPINE [Concomitant]
     Indication: EPILEPSY
     Dosage: 600MG TWICE PER DAY
     Route: 048
  2. TROBALT [Suspect]
     Indication: EPILEPSY
     Route: 048
     Dates: end: 20111030

REACTIONS (4)
  - SPEECH DISORDER [None]
  - URINARY RETENTION [None]
  - DYSURIA [None]
  - APHASIA [None]
